FAERS Safety Report 9956826 (Version 1)
Quarter: 2014Q1

REPORT INFORMATION
  Report Type: Report from Study
  Country: US (occurrence: US)
  Receive Date: 20140304
  Receipt Date: 20140304
  Transmission Date: 20141002
  Serious: No
  Sender: FDA-Public Use
  Company Number: US-ABBVIE-13P-163-1098899-00

PATIENT
  Age: 53 Year
  Sex: Female

DRUGS (6)
  1. HUMIRA [Suspect]
     Indication: PSORIATIC ARTHROPATHY
     Dates: start: 20130322
  2. HCTZ [Concomitant]
     Indication: BLOOD PRESSURE
     Dosage: 25MG DAILY (X1)
  3. FISH OIL [Concomitant]
     Indication: INFLAMMATION
     Dosage: 1000MG (X2) DAILY
  4. FISH OIL [Concomitant]
     Indication: PROPHYLAXIS
  5. VITAMIN D3 [Concomitant]
     Indication: PROPHYLAXIS
     Dosage: 10000 IU DAILY
  6. TRAMADOL [Concomitant]
     Indication: PAIN
     Dosage: 50MG DAILY

REACTIONS (5)
  - Increased appetite [Not Recovered/Not Resolved]
  - Injection site pain [Not Recovered/Not Resolved]
  - Weight increased [Not Recovered/Not Resolved]
  - Nausea [Not Recovered/Not Resolved]
  - Injection site pain [Not Recovered/Not Resolved]
